FAERS Safety Report 9117169 (Version 1)
Quarter: 2013Q1

REPORT INFORMATION
  Report Type: Spontaneous
  Country: US (occurrence: US)
  Receive Date: 20130225
  Receipt Date: 20130225
  Transmission Date: 20140127
  Serious: No
  Sender: FDA-Public Use
  Company Number: US-009507513-1302USA010489

PATIENT
  Sex: Female

DRUGS (4)
  1. MONTELUKAST SODIUM [Suspect]
     Dosage: 10 MG, QD
     Route: 048
  2. NEXIUM [Concomitant]
  3. VITAMINS (UNSPECIFIED) [Concomitant]
  4. HORMONAL CONTRACEPTIVES (UNSPECIFIED) [Concomitant]

REACTIONS (5)
  - Sinus headache [Unknown]
  - Ear pain [Unknown]
  - Ear infection [Unknown]
  - Hypersensitivity [Unknown]
  - Drug ineffective [Unknown]
